FAERS Safety Report 6971796-X (Version None)
Quarter: 2010Q3

REPORT INFORMATION
  Report Type: 
  Country: None (occurrence: None)
  Receive Date: 20100908
  Receipt Date: 20100901
  Transmission Date: 20110219
  Serious: Yes (Other)
  Sender: FDA-Public Use
  Company Number: US-MERCK-1006USA04536

PATIENT
  Age: 71 Year
  Sex: Female

DRUGS (4)
  1. FOSAMAX [Suspect]
     Indication: OSTEOPENIA
     Route: 048
     Dates: start: 20050201, end: 20080204
  2. CALCIUM (UNSPECIFIED) [Concomitant]
     Route: 065
  3. VITAMIN D (UNSPECIFIED) [Concomitant]
     Route: 065
  4. ALENDRONATE SODIUM [Suspect]
     Indication: OSTEOPENIA
     Route: 048
     Dates: start: 20080225, end: 20081211

REACTIONS (27)
  - ACTINIC KERATOSIS [None]
  - ACUTE SINUSITIS [None]
  - ANGINA BULLOSA HAEMORRHAGICA [None]
  - ANXIETY [None]
  - BASAL CELL CARCINOMA [None]
  - BLOOD CHOLESTEROL INCREASED [None]
  - BLOOD PRESSURE INCREASED [None]
  - BRONCHITIS [None]
  - CONTUSION [None]
  - FALL [None]
  - GINGIVITIS [None]
  - HYPERTRIGLYCERIDAEMIA [None]
  - HYPERTROPHY [None]
  - INTESTINAL POLYP [None]
  - MELANOCYTIC NAEVUS [None]
  - MUSCULOSKELETAL DISCOMFORT [None]
  - NECROSIS [None]
  - OSTEONECROSIS OF JAW [None]
  - OSTEOPOROSIS [None]
  - PHARYNGITIS [None]
  - RHEUMATOID ARTHRITIS [None]
  - SEBORRHOEIC KERATOSIS [None]
  - SKIN PAPILLOMA [None]
  - SPINAL COMPRESSION FRACTURE [None]
  - SQUAMOUS CELL CARCINOMA OF SKIN [None]
  - TOOTH EXTRACTION [None]
  - VERTIGO [None]
